FAERS Safety Report 5278962-2 (Version None)
Quarter: 2007Q1

REPORT INFORMATION
  Report Type: 
  Country: None (occurrence: None)
  Receive Date: 20070328
  Receipt Date: 20061120
  Transmission Date: 20070707
  Serious: No
  Sender: FDA-Public Use
  Company Number: US-AMGEN-KDL200806

PATIENT
  Sex: Female

DRUGS (9)
  1. NEUPOGEN [Suspect]
     Indication: DRUG USE FOR UNKNOWN INDICATION
     Route: 065
     Dates: start: 20060704, end: 20061114
  2. NEULASTA [Suspect]
     Route: 065
     Dates: start: 20061117
  3. IMITREX [Concomitant]
     Route: 065
  4. SLEEPING MEDICATION NOS [Concomitant]
     Route: 065
  5. FLEXERIL [Concomitant]
     Route: 065
  6. ADVIL [Concomitant]
     Route: 065
  7. ASPIRIN [Concomitant]
     Route: 065
  8. EXCEDRIN (MIGRAINE) [Concomitant]
     Route: 065
  9. RU-TUSS [Concomitant]
     Route: 065

REACTIONS (2)
  - BONE PAIN [None]
  - WHITE BLOOD CELL COUNT INCREASED [None]
